FAERS Safety Report 6067934-6 (Version None)
Quarter: 2009Q1

REPORT INFORMATION
  Report Type: 
  Country: None (occurrence: None)
  Receive Date: 20090206
  Receipt Date: 20090128
  Transmission Date: 20090719
  Serious: Yes (Hospitalization)
  Sender: FDA-Public Use
  Company Number: US-CELGENEUS-163-21880-09011519

PATIENT
  Sex: Male

DRUGS (2)
  1. REVLIMID [Suspect]
     Indication: MULTIPLE MYELOMA
     Route: 048
     Dates: start: 20080904, end: 20081201
  2. REVLIMID [Suspect]
     Route: 048
     Dates: start: 20070411, end: 20080601

REACTIONS (1)
  - SUBDURAL HAEMATOMA [None]
